FAERS Safety Report 6025080-1 (Version None)
Quarter: 2008Q4

REPORT INFORMATION
  Report Type: 
  Country: None (occurrence: None)
  Receive Date: 20081224
  Receipt Date: 20081217
  Transmission Date: 20090506
  Serious: Yes (Other)
  Sender: FDA-Public Use
  Company Number: 2008003171

PATIENT
  Sex: Male

DRUGS (3)
  1. TARCEVA [Suspect]
     Dates: start: 20060101
  2. FUCIDINE CAP [Suspect]
  3. TOLEXINE (DOXYCYCLINE) [Concomitant]

REACTIONS (2)
  - DRUG EFFECT DECREASED [None]
  - DRUG INTERACTION [None]
